FAERS Safety Report 15555923 (Version 1)
Quarter: 2018Q4

REPORT INFORMATION
  Report Type: Spontaneous
  Country: NZ (occurrence: NZ)
  Receive Date: 20181026
  Receipt Date: 20181026
  Transmission Date: 20190205
  Serious: Yes (Other)
  Sender: FDA-Public Use
  Company Number: NZ-BAUSCH-BL-2018-028750

PATIENT
  Age: 67 Year
  Sex: Female

DRUGS (1)
  1. EFUDIX CREAM 5% [Suspect]
     Active Substance: FLUOROURACIL
     Indication: SKIN CANCER
     Route: 061
     Dates: start: 20180321, end: 20180408

REACTIONS (1)
  - Anaphylactic shock [Recovering/Resolving]

NARRATIVE: CASE EVENT DATE: 20180407
